FAERS Safety Report 5554265-3 (Version None)
Quarter: 2007Q4

REPORT INFORMATION
  Report Type: 
  Country: None (occurrence: None)
  Receive Date: 20071213
  Receipt Date: 20071211
  Transmission Date: 20080405
  Serious: Yes (Death, Hospitalization)
  Sender: FDA-Public Use
  Company Number: A0698331A

PATIENT
  Age: 57 Year
  Sex: Male

DRUGS (2)
  1. COREG [Suspect]
     Indication: HYPERTENSION
     Route: 048
     Dates: end: 20070806
  2. NO CONCURRENT MEDICATION [Concomitant]

REACTIONS (3)
  - CARDIAC ARREST [None]
  - DEATH [None]
  - LOCALISED INFECTION [None]
